FAERS Safety Report 13943775 (Version 1)
Quarter: 2017Q3

REPORT INFORMATION
  Report Type: Report from Study
  Country: None (occurrence: CA)
  Receive Date: 20170907
  Receipt Date: 20170907
  Transmission Date: 20171128
  Serious: Yes (Other)
  Sender: FDA-Public Use
  Company Number: CA-ABBVIE-17P-028-1995816-00

PATIENT
  Sex: Female

DRUGS (5)
  1. HUMIRA [Suspect]
     Active Substance: ADALIMUMAB
     Indication: CROHN^S DISEASE
     Route: 058
     Dates: start: 20160524, end: 201702
  2. HUMIRA [Suspect]
     Active Substance: ADALIMUMAB
     Route: 058
     Dates: start: 20170802
  3. FLAGYL [Suspect]
     Active Substance: METRONIDAZOLE\METRONIDAZOLE HYDROCHLORIDE
     Indication: INFECTION PARASITIC
     Route: 065
  4. BENTYL [Concomitant]
     Active Substance: DICYCLOMINE HYDROCHLORIDE
     Indication: GASTROINTESTINAL PAIN
     Dosage: 20 MG UP TO QID PRN
     Route: 048
  5. HUMIRA [Suspect]
     Active Substance: ADALIMUMAB
     Route: 058
     Dates: start: 201702, end: 2017

REACTIONS (10)
  - Swelling [Not Recovered/Not Resolved]
  - Diarrhoea [Not Recovered/Not Resolved]
  - Infection parasitic [Not Recovered/Not Resolved]
  - Multicentric reticulohistiocytosis [Not Recovered/Not Resolved]
  - Headache [Not Recovered/Not Resolved]
  - Urticaria [Not Recovered/Not Resolved]
  - Hepatic cancer [Not Recovered/Not Resolved]
  - Chromaturia [Not Recovered/Not Resolved]
  - Hepatic pain [Not Recovered/Not Resolved]
  - Oropharyngeal pain [Not Recovered/Not Resolved]

NARRATIVE: CASE EVENT DATE: 2017
